FAERS Safety Report 18171024 (Version 1)
Quarter: 2020Q3

REPORT INFORMATION
  Report Type: Spontaneous
  Country: US (occurrence: US)
  Receive Date: 20200819
  Receipt Date: 20200819
  Transmission Date: 20201103
  Serious: No
  Sender: FDA-Public Use
  Company Number: US-RECORDATI RARE DISEASES-2088799

PATIENT
  Age: 24 Month
  Sex: Male

DRUGS (4)
  1. CARBAGLU [Suspect]
     Active Substance: CARGLUMIC ACID
     Indication: HYPERGLYCINAEMIA
  2. FERROUS SULFATE. [Concomitant]
     Active Substance: FERROUS SULFATE
  3. POTASSIUM CITRATE. [Concomitant]
     Active Substance: POTASSIUM CITRATE
  4. CARBAGLU [Suspect]
     Active Substance: CARGLUMIC ACID

REACTIONS (5)
  - Irritability [Unknown]
  - Off label use [Unknown]
  - Ammonia increased [Unknown]
  - Product dose omission issue [Unknown]
  - Vomiting [Unknown]
